FAERS Safety Report 17827578 (Version 3)
Quarter: 2020Q3

REPORT INFORMATION
  Report Type: Spontaneous
  Country: US (occurrence: US)
  Receive Date: 20200527
  Receipt Date: 20200924
  Transmission Date: 20201102
  Serious: No
  Sender: FDA-Public Use
  Company Number: US-ASTRAZENECA-2020SE65273

PATIENT
  Age: 31 Year
  Sex: Male

DRUGS (7)
  1. SEROQUEL XR [Suspect]
     Active Substance: QUETIAPINE FUMARATE
     Indication: BIPOLAR DISORDER
     Dosage: UNKNOWN
     Route: 048
  2. SEROQUEL GENERIC NOT SPECIFIED [Suspect]
     Active Substance: QUETIAPINE FUMARATE
     Indication: MAJOR DEPRESSION
     Dosage: UNKNOWN
     Route: 048
  3. ZYPREXA [Concomitant]
     Active Substance: OLANZAPINE
  4. SEROQUEL XR [Suspect]
     Active Substance: QUETIAPINE FUMARATE
     Indication: MAJOR DEPRESSION
     Dosage: UNKNOWN
     Route: 048
  5. SEROQUEL GENERIC NOT SPECIFIED [Suspect]
     Active Substance: QUETIAPINE FUMARATE
     Indication: PSYCHOTIC DISORDER
     Dosage: UNKNOWN
     Route: 048
  6. SEROQUEL XR [Suspect]
     Active Substance: QUETIAPINE FUMARATE
     Indication: BIPOLAR DISORDER
     Dosage: UNKNOWN
     Route: 048
  7. SEROQUEL GENERIC NOT SPECIFIED [Suspect]
     Active Substance: QUETIAPINE FUMARATE
     Indication: BIPOLAR DISORDER
     Dosage: UNKNOWN
     Route: 048

REACTIONS (6)
  - Product dispensing error [Unknown]
  - Injury [Unknown]
  - Schizoaffective disorder [Unknown]
  - Akathisia [Unknown]
  - Product substitution issue [Unknown]
  - Drug ineffective [Unknown]
